FAERS Safety Report 17049732 (Version 1)
Quarter: 2019Q4

REPORT INFORMATION
  Report Type: Spontaneous
  Country: UG (occurrence: UG)
  Receive Date: 20191119
  Receipt Date: 20191119
  Transmission Date: 20200122
  Serious: Yes (Other)
  Sender: FDA-Public Use
  Company Number: UG-BAUSCH-BL-2019-062045

PATIENT
  Sex: Male

DRUGS (1)
  1. DERMOFIX [Suspect]
     Active Substance: SERTACONAZOLE NITRATE
     Indication: TINEA PEDIS
     Route: 061

REACTIONS (2)
  - Application site erythema [Recovered/Resolved]
  - Application site swelling [Recovered/Resolved]
